FAERS Safety Report 12590306 (Version 1)
Quarter: 2016Q3

REPORT INFORMATION
  Report Type: Spontaneous
  Country: DE (occurrence: DE)
  Receive Date: 20160725
  Receipt Date: 20160725
  Transmission Date: 20161109
  Serious: Yes (Other)
  Sender: FDA-Public Use
  Company Number: DE-TEVA-676510GER

PATIENT
  Age: 74 Year
  Sex: Male
  Weight: 82 kg

DRUGS (8)
  1. OXYGEN. [Concomitant]
     Active Substance: OXYGEN
     Route: 055
  2. MYFENAX [Suspect]
     Active Substance: MYCOPHENOLATE MOFETIL
     Indication: SCLERODERMA
     Dosage: 1-0-2
     Route: 048
     Dates: start: 201603
  3. IBUPROFEN. [Concomitant]
     Active Substance: IBUPROFEN
     Route: 048
  4. CALCILAC [Concomitant]
     Active Substance: CALCIUM CARBONATE
     Route: 048
  5. METYPRED [Concomitant]
     Active Substance: METHYLPREDNISOLONE
     Dosage: 4MG, 8 MG, ALTERNATING
     Route: 048
  6. MCP HEXAL [Concomitant]
     Active Substance: METOCLOPRAMIDE HYDROCHLORIDE
     Route: 048
  7. PANTOPRAZOL [Concomitant]
     Active Substance: PANTOPRAZOLE SODIUM
     Indication: GASTRIC DISORDER
     Dosage: 40 MILLIGRAM DAILY;
     Route: 048
  8. PULMICORT TURBUHALER [Concomitant]
     Active Substance: BUDESONIDE
     Route: 055

REACTIONS (4)
  - Arthralgia [Unknown]
  - Nausea [Unknown]
  - Respiratory distress [Unknown]
  - Haematoma [Unknown]

NARRATIVE: CASE EVENT DATE: 201605
